FAERS Safety Report 5072193-7 (Version None)
Quarter: 2006Q3

REPORT INFORMATION
  Report Type: 
  Country: None (occurrence: None)
  Receive Date: 20060807
  Receipt Date: 20060728
  Transmission Date: 20061208
  Serious: Yes (Death)
  Sender: FDA-Public Use
  Company Number: CA-JNJFOC-20060800120

PATIENT
  Age: 6 Decade
  Sex: Male

DRUGS (14)
  1. REMICADE [Suspect]
     Route: 042
  2. REMICADE [Suspect]
     Route: 042
  3. REMICADE [Suspect]
     Indication: CROHN'S DISEASE
     Route: 042
  4. DILAUDID [Concomitant]
  5. PENTASA [Concomitant]
  6. PREDNISONE TAB [Concomitant]
  7. DURAGESIC-100 [Concomitant]
  8. IMODIUM [Concomitant]
  9. COLACE [Concomitant]
  10. PANTOPRAZOLE SODIUM [Concomitant]
  11. FOSAMAX [Concomitant]
  12. CALCIUM+D [Concomitant]
  13. CARDURA [Concomitant]
  14. IMURAN [Concomitant]

REACTIONS (3)
  - LUNG ABSCESS [None]
  - PNEUMONIA [None]
  - PNEUMOTHORAX [None]
